FAERS Safety Report 15979833 (Version 1)
Quarter: 2019Q1

REPORT INFORMATION
  Report Type: Spontaneous
  Country: GB (occurrence: GB)
  Receive Date: 20190219
  Receipt Date: 20190219
  Transmission Date: 20190418
  Serious: Yes (Death, Congenital Anomaly, Other)
  Sender: FDA-Public Use
  Company Number: GB-ACCORD-107170

PATIENT

DRUGS (3)
  1. SERTRALINE [Suspect]
     Active Substance: SERTRALINE HYDROCHLORIDE
     Indication: PRODUCT USED FOR UNKNOWN INDICATION
     Dosage: INCREASING DOSES
     Route: 064
  2. ISOSORBIDE. [Suspect]
     Active Substance: ISOSORBIDE
     Indication: PRODUCT USED FOR UNKNOWN INDICATION
     Route: 064
  3. CHLORPROMAZINE. [Suspect]
     Active Substance: CHLORPROMAZINE
     Indication: DEPRESSION
     Dosage: INCREASING DOSES
     Route: 064

REACTIONS (6)
  - Umbilical cord vascular disorder [Fatal]
  - Foetal growth restriction [Fatal]
  - Foetal exposure during pregnancy [Fatal]
  - Foetal death [Fatal]
  - Foetal gastrointestinal tract imaging abnormal [Fatal]
  - Oligohydramnios [Fatal]
